FAERS Safety Report 23171860 (Version 2)
Quarter: 2023Q4

REPORT INFORMATION
  Report Type: Report from Study
  Country: BE (occurrence: BE)
  Receive Date: 20231110
  Receipt Date: 20231117
  Transmission Date: 20240109
  Serious: Yes (Hospitalization)
  Sender: FDA-Public Use
  Company Number: BE-SA-SAC20231108000288

PATIENT
  Age: 65 Year
  Sex: Female
  Weight: 64.6 kg

DRUGS (4)
  1. ISATUXIMAB [Suspect]
     Active Substance: ISATUXIMAB
     Indication: Stem cell transplant
     Dosage: 660 MG
     Route: 042
     Dates: start: 20230710, end: 20230710
  2. CARFILZOMIB [Suspect]
     Active Substance: CARFILZOMIB
     Indication: Stem cell transplant
     Dosage: 34.6 MG
     Route: 042
     Dates: start: 20230710, end: 20230710
  3. LENALIDOMIDE [Suspect]
     Active Substance: LENALIDOMIDE
     Indication: Stem cell transplant
     Dosage: 25 MG, QD
     Route: 048
     Dates: start: 20230710, end: 20230710
  4. DEXAMETHASONE [Suspect]
     Active Substance: DEXAMETHASONE
     Indication: Stem cell transplant
     Dosage: 40 MG, QW
     Route: 042
     Dates: start: 20230710, end: 20230710

REACTIONS (1)
  - COVID-19 [Recovered/Resolved]

NARRATIVE: CASE EVENT DATE: 20231103
